FAERS Safety Report 10063756 (Version 1)
Quarter: 2014Q2

REPORT INFORMATION
  Report Type: Spontaneous
  Country: US (occurrence: US)
  Receive Date: 20140408
  Receipt Date: 20140408
  Transmission Date: 20141212
  Serious: No
  Sender: FDA-Public Use
  Company Number: US-009507513-1403USA011122

PATIENT
  Age: 52 Year
  Sex: Female

DRUGS (1)
  1. ASMANEX TWISTHALER [Suspect]
     Indication: HYPERSENSITIVITY
     Dosage: 220MCG/ONE PUFF ONCE DAILY
     Route: 055
     Dates: start: 20140308

REACTIONS (3)
  - Chest discomfort [Recovered/Resolved]
  - Drug dose omission [Unknown]
  - Product quality issue [Unknown]
